FAERS Safety Report 21249174 (Version 2)
Quarter: 2022Q3

REPORT INFORMATION
  Report Type: Spontaneous
  Country: DE (occurrence: None)
  Receive Date: 20220824
  Receipt Date: 20220915
  Transmission Date: 20221026
  Serious: Yes (Other)
  Sender: FDA-Public Use
  Company Number: 2022A281432

PATIENT
  Sex: Male

DRUGS (1)
  1. SYMBICORT [Suspect]
     Active Substance: BUDESONIDE\FORMOTEROL FUMARATE DIHYDRATE
     Dosage: 320/9, UNKNOWN FREQUENCY UNKNOWN
     Route: 055

REACTIONS (3)
  - Condition aggravated [Unknown]
  - Device ineffective [Unknown]
  - Product packaging quantity issue [Unknown]
